FAERS Safety Report 11102200 (Version 6)
Quarter: 2015Q3

REPORT INFORMATION
  Report Type: Spontaneous
  Country: IT (occurrence: IT)
  Receive Date: 20150511
  Receipt Date: 20150729
  Transmission Date: 20151125
  Serious: Yes (Hospitalization)
  Sender: FDA-Public Use
  Company Number: IT-ROCHE-1574887

PATIENT
  Age: 39 Year
  Sex: Female

DRUGS (12)
  1. TAVOR [Suspect]
     Active Substance: LORAZEPAM
     Route: 048
     Dates: start: 20150502, end: 20150502
  2. EFFEXOR [Concomitant]
     Active Substance: VENLAFAXINE HYDROCHLORIDE
     Dosage: 37.5 MG HARD EXTENDED-RELEASE CAPSULE
     Route: 048
  3. VALIUM [Suspect]
     Active Substance: DIAZEPAM
     Indication: DRUG ABUSE
     Dosage: 2 MG HARD CAPSULE, 30 CAPSULES
     Route: 048
     Dates: start: 20150502, end: 20150502
  4. EFFEXOR [Concomitant]
     Active Substance: VENLAFAXINE HYDROCHLORIDE
     Dosage: 75 MG HARD EXTENDED-RELEASE CAPSULE
     Route: 048
  5. EFFEXOR [Concomitant]
     Active Substance: VENLAFAXINE HYDROCHLORIDE
     Dosage: 37.5MG PROLONGED-RELEASE CAPSULES,HARD 28 CAPSULES
     Route: 048
  6. VATRAN [Suspect]
     Active Substance: DIAZEPAM
     Indication: DRUG ABUSE
     Dosage: 25 TABLETS 2MG
     Route: 048
     Dates: start: 20150502, end: 20150502
  7. VATRAN [Suspect]
     Active Substance: DIAZEPAM
     Route: 065
  8. TAVOR [Suspect]
     Active Substance: LORAZEPAM
     Indication: DRUG ABUSE
     Dosage: 2.5 MG TABLETS^ 20 TABLETS
     Route: 050
     Dates: start: 20150502, end: 20150502
  9. PROZIN [Suspect]
     Active Substance: CHLORPROMAZINE HYDROCHLORIDE
     Dosage: 1 AND 1/2 IN EVENING
     Route: 065
  10. CARBOLITHIUM [Concomitant]
     Active Substance: LITHIUM CARBONATE
     Dosage: 300 MG CAPSULES, HARD 50 CAPSULES
     Route: 048
  11. PROZIN [Suspect]
     Active Substance: CHLORPROMAZINE HYDROCHLORIDE
     Indication: DRUG ABUSE
     Dosage: 100 MG 20 COATED TABLETS
     Route: 048
     Dates: start: 20150502, end: 20150502
  12. TAVOR [Suspect]
     Active Substance: LORAZEPAM
     Dosage: 1 MG TABLETS^ 20 TABLETS
     Route: 048
     Dates: start: 20150502, end: 20150502

REACTIONS (3)
  - Intentional self-injury [Unknown]
  - Drug abuse [Unknown]
  - Sopor [Recovered/Resolved]

NARRATIVE: CASE EVENT DATE: 20150502
